FAERS Safety Report 19441177 (Version 1)
Quarter: 2021Q2

REPORT INFORMATION
  Report Type: Spontaneous
  Country: US (occurrence: US)
  Receive Date: 20210617
  Receipt Date: 20210617
  Transmission Date: 20210717
  Serious: Yes (Death)
  Sender: FDA-Public Use
  Company Number: None

PATIENT
  Age: 54 Year
  Sex: Female

DRUGS (1)
  1. VEKLURY [Suspect]
     Active Substance: REMDESIVIR
     Indication: DRUG THERAPY
     Dates: start: 20200822, end: 20200901

REACTIONS (2)
  - General physical health deterioration [None]
  - Product use issue [None]

NARRATIVE: CASE EVENT DATE: 20200909
